FAERS Safety Report 22142732 (Version 3)
Quarter: 2023Q2

REPORT INFORMATION
  Report Type: Spontaneous
  Country: US (occurrence: US)
  Receive Date: 20230327
  Receipt Date: 20230417
  Transmission Date: 20230721
  Serious: No
  Sender: FDA-Public Use
  Company Number: US-Calliditas-2023CAL00296

PATIENT
  Age: 55 Year
  Sex: Male

DRUGS (4)
  1. TARPEYO [Suspect]
     Active Substance: BUDESONIDE
     Indication: Haematuria
     Dosage: 16 MG (4 MG CAPSULES) ONCE DAILY
     Route: 048
     Dates: start: 20230317
  2. SPARSENTAN [Concomitant]
     Active Substance: SPARSENTAN
     Dates: start: 20230317
  3. SPARSENTAN [Concomitant]
     Active Substance: SPARSENTAN
     Dosage: 400 MG (2 TABLETS) DAILY
  4. VITAMINS NOS [Concomitant]
     Active Substance: VITAMINS

REACTIONS (3)
  - Product dose omission issue [Unknown]
  - Product use issue [Unknown]
  - Abdominal pain upper [Unknown]
